FAERS Safety Report 13803788 (Version 1)
Quarter: 2017Q3

REPORT INFORMATION
  Report Type: Spontaneous
  Country: US (occurrence: US)
  Receive Date: 20170728
  Receipt Date: 20170728
  Transmission Date: 20171127
  Serious: Yes (Other)
  Sender: FDA-Public Use
  Company Number: US-ROCHE-1969835

PATIENT
  Age: 60 Year
  Sex: Female

DRUGS (2)
  1. XOLAIR [Suspect]
     Active Substance: OMALIZUMAB
     Indication: CHRONIC SPONTANEOUS URTICARIA
     Dosage: 2 DOSES ;ONGOING: NO
     Route: 058
     Dates: start: 201701
  2. XOLAIR [Suspect]
     Active Substance: OMALIZUMAB
     Dosage: 4 DOSES ;ONGOING: NO
     Route: 058
     Dates: start: 2017

REACTIONS (5)
  - Throat tightness [Unknown]
  - Serum sickness-like reaction [Unknown]
  - Rash maculo-papular [Unknown]
  - Pain [Unknown]
  - Fatigue [Unknown]
